FAERS Safety Report 23256976 (Version 2)
Quarter: 2024Q1

REPORT INFORMATION
  Report Type: Spontaneous
  Country: US (occurrence: US)
  Receive Date: 20231204
  Receipt Date: 20240124
  Transmission Date: 20240410
  Serious: Yes (Other)
  Sender: FDA-Public Use
  Company Number: US-UCBSA-2023057122

PATIENT
  Age: 64 Year
  Sex: Female
  Weight: 81.65 kg

DRUGS (16)
  1. CIMZIA [Suspect]
     Active Substance: CERTOLIZUMAB PEGOL
     Indication: Rheumatoid arthritis
     Dosage: 200 MILLIGRAM, EV 2 WEEKS(QOW)
     Route: 058
     Dates: start: 20230823, end: 20231113
  2. ENBREL [Concomitant]
     Active Substance: ETANERCEPT
     Indication: Product used for unknown indication
     Dosage: UNK
  3. ORENCIA [Concomitant]
     Active Substance: ABATACEPT
     Indication: Product used for unknown indication
     Dosage: UNK
  4. TUBERCULIN NOS [Concomitant]
     Active Substance: TUBERCULIN PURIFIED PROTEIN DERIVATIVE
     Indication: Product used for unknown indication
     Dosage: UNK
     Dates: start: 20230707
  5. CALCIUM [Concomitant]
     Active Substance: CALCIUM
     Indication: Product used for unknown indication
     Dosage: 600 MILLIGRAM DAILY
     Dates: start: 20230821
  6. CETIRIZINE [Concomitant]
     Active Substance: CETIRIZINE HYDROCHLORIDE
     Indication: Product used for unknown indication
     Dosage: 10 MILLIGRAM
     Dates: start: 20231204
  7. CYCLOBENZAPRINE [Concomitant]
     Active Substance: CYCLOBENZAPRINE
     Indication: Product used for unknown indication
     Dosage: 10 MILLIGRAM TAKE 1 {TAB(S)} AS NEEDED BY ORAL ROUTE AT BEDTIME.,
     Route: 048
     Dates: start: 20230328
  8. VITAMIN D2 [Concomitant]
     Active Substance: ERGOCALCIFEROL
     Indication: Product used for unknown indication
     Dosage: 1,250 MCG (50,000 UNIT) CAPSULE TAKE 1 CAPSULE ONCE A WEEK
     Dates: start: 20231128
  9. FOLIC ACID [Concomitant]
     Active Substance: FOLIC ACID
     Indication: Mouth ulceration
     Dosage: 1 TABLET DAILY. MAY INCREASE TO 2-3 TABLET DAILY IF NEEDED
     Dates: start: 20231010
  10. LIDOCAINE [Concomitant]
     Active Substance: LIDOCAINE
     Indication: Product used for unknown indication
     Dosage: APPLY 1 PATCH BY TOPICAL ROUTE ONCE DAILY (MAY WEAR UP TO 12 HOURS.
     Route: 062
     Dates: start: 20230808
  11. METHOTREXATE SODIUM [Concomitant]
     Active Substance: METHOTREXATE SODIUM
     Indication: Product used for unknown indication
     Dosage: 0.5 MILLILITER, (12.5 MG) WEEKLY (QW)
     Dates: start: 20231010
  12. MUCUS RELIEF ER [Concomitant]
     Active Substance: GUAIFENESIN
     Indication: Product used for unknown indication
     Dosage: 600 MILLIGRAM AS NEEDED
     Dates: start: 20231204
  13. PREDNISONE [Concomitant]
     Active Substance: PREDNISONE
     Indication: Product used for unknown indication
     Dosage: 5 MG TABLET 3 TABLETS DAILY FOR 5 DAYS; THEN 2 TABLETS DAILY FOR 5 DAYS; THEN 1 TABLET DAILY OR AS D
     Dates: start: 20231026
  14. REFRESH TEARS [Concomitant]
     Active Substance: CARBOXYMETHYLCELLULOSE SODIUM
     Indication: Product used for unknown indication
     Dosage: 05%
     Dates: start: 20231204
  15. TYLENOL EXTRA STRENGTH [Concomitant]
     Active Substance: ACETAMINOPHEN
     Indication: Product used for unknown indication
     Dosage: 500 MILLIGRAM, 2 TABLETS 2X/DAY (BID)
     Route: 048
     Dates: start: 20230810
  16. XELJANZ XR [Concomitant]
     Active Substance: TOFACITINIB CITRATE
     Indication: Product used for unknown indication
     Dosage: 11 MG TABLET.EXTENDED RELEASE TAKE 1 TABLET(S) EVERY DAY FOR 60 DAYS
     Route: 048
     Dates: start: 20231124

REACTIONS (2)
  - Rheumatoid arthritis [Unknown]
  - Drug ineffective [Unknown]

NARRATIVE: CASE EVENT DATE: 20231101
